FAERS Safety Report 5582065-7 (Version None)
Quarter: 2007Q4

REPORT INFORMATION
  Report Type: 
  Country: None (occurrence: None)
  Receive Date: 20071130
  Receipt Date: 20070808
  Transmission Date: 20080405
  Serious: No
  Sender: FDA-Public Use
  Company Number: US200706001088

PATIENT
  Age: 60 Year
  Sex: Female

DRUGS (14)
  1. BYETTA [Suspect]
     Indication: TYPE 2 DIABETES MELLITUS
     Dosage: 5 UG, 2/D, SUBCUTANEOUS
     Route: 058
     Dates: start: 20070526
  2. AMARYL [Concomitant]
  3. GLUCOPHAGE [Concomitant]
  4. ACTOS /USA/ (PIOGLITAZONE HYDROCHLORIDE) [Concomitant]
  5. ZIAC [Concomitant]
  6. EVISTA [Concomitant]
  7. LEVOTHYROXINE SODIUM [Concomitant]
  8. CYMBALTA [Concomitant]
  9. ASPIRIN [Concomitant]
  10. ATIVAN [Concomitant]
  11. TEMAZEPAM [Concomitant]
  12. VYTORIN [Concomitant]
  13. PLAVIX [Concomitant]
  14. PREDNISONE TAB [Concomitant]

REACTIONS (4)
  - INJECTION SITE ERYTHEMA [None]
  - INJECTION SITE PRURITUS [None]
  - PRURITUS [None]
  - SCAB [None]
